FAERS Safety Report 24907410 (Version 1)
Quarter: 2025Q1

REPORT INFORMATION
  Report Type: Spontaneous
  Country: US (occurrence: US)
  Receive Date: 20250130
  Receipt Date: 20250130
  Transmission Date: 20250409
  Serious: No
  Sender: NEUROCRINE BIOSCIENCES
  Company Number: US-NEUROCRINE BIOSCIENCES INC.-2025NBI00620

PATIENT
  Age: 7 Decade
  Sex: Male

DRUGS (4)
  1. INGREZZA [Suspect]
     Active Substance: VALBENAZINE
     Indication: Tardive dyskinesia
     Route: 048
     Dates: start: 202411, end: 202412
  2. VRAYLAR [Concomitant]
     Active Substance: CARIPRAZINE
  3. REXULTI [Concomitant]
     Active Substance: BREXPIPRAZOLE
  4. ABILIFY [Concomitant]
     Active Substance: ARIPIPRAZOLE

REACTIONS (2)
  - Tremor [Unknown]
  - Parkinsonism [Unknown]
